FAERS Safety Report 6930154-4 (Version None)
Quarter: 2010Q3

REPORT INFORMATION
  Report Type: 
  Country: None (occurrence: None)
  Receive Date: 20100818
  Receipt Date: 20100806
  Transmission Date: 20110219
  Serious: Yes (Death, Hospitalization)
  Sender: FDA-Public Use
  Company Number: IN-PFIZER INC-2010098883

PATIENT
  Age: 69 Year
  Sex: Male

DRUGS (1)
  1. MAGNEX [Suspect]
     Dosage: 1 G, 2X/DAY
     Route: 042
     Dates: start: 20081020, end: 20081021

REACTIONS (10)
  - ACUTE RESPIRATORY DISTRESS SYNDROME [None]
  - ATRIAL FIBRILLATION [None]
  - CHEST DISCOMFORT [None]
  - DECUBITUS ULCER [None]
  - DYSPNOEA [None]
  - HYPERHIDROSIS [None]
  - LOWER RESPIRATORY TRACT INFECTION [None]
  - PLEURAL EFFUSION [None]
  - SEPSIS [None]
  - VENTRICULAR TACHYCARDIA [None]
